FAERS Safety Report 13454307 (Version 1)
Quarter: 2017Q2

REPORT INFORMATION
  Report Type: Spontaneous
  Country: US (occurrence: US)
  Receive Date: 20170418
  Receipt Date: 20170418
  Transmission Date: 20170830
  Serious: No
  Sender: FDA-Public Use
  Company Number: US-ALLERGAN-1708998US

PATIENT
  Sex: Female

DRUGS (4)
  1. PRILOSEC [Concomitant]
     Active Substance: OMEPRAZOLE MAGNESIUM
     Indication: PRODUCT USED FOR UNKNOWN INDICATION
     Dosage: UNK UNK, QOD
     Route: 048
  2. LUMIGAN [Suspect]
     Active Substance: BIMATOPROST
     Indication: EYE HAEMORRHAGE
  3. LUMIGAN [Suspect]
     Active Substance: BIMATOPROST
     Indication: GLAUCOMA
     Dosage: UNK, QHS
     Route: 047
  4. CARAFATE [Concomitant]
     Active Substance: SUCRALFATE
     Indication: BACTERIAL INFECTION
     Route: 048

REACTIONS (4)
  - Sinus disorder [Unknown]
  - Off label use [Unknown]
  - Hypoacusis [Not Recovered/Not Resolved]
  - Paranasal sinus hypersecretion [Unknown]
